FAERS Safety Report 6827763-X (Version None)
Quarter: 2010Q3

REPORT INFORMATION
  Report Type: 
  Country: None (occurrence: None)
  Receive Date: 20100709
  Receipt Date: 20070124
  Transmission Date: 20110219
  Serious: No
  Sender: FDA-Public Use
  Company Number: US-PFIZER INC-2007008448

PATIENT
  Sex: Female
  Weight: 58.97 kg

DRUGS (6)
  1. CHANTIX [Suspect]
     Indication: SMOKING CESSATION THERAPY
     Dates: start: 20061201
  2. FISH OIL [Concomitant]
  3. FLAXSEED OIL [Concomitant]
  4. ADVIL LIQUI-GELS [Concomitant]
  5. ACETYLSALICYLIC ACID [Concomitant]
  6. OXYGEN [Concomitant]

REACTIONS (4)
  - ABNORMAL SENSATION IN EYE [None]
  - URINE FLOW DECREASED [None]
  - URINE OUTPUT DECREASED [None]
  - WEIGHT INCREASED [None]
